FAERS Safety Report 9816281 (Version 2)
Quarter: 2014Q1

REPORT INFORMATION
  Report Type: Report from Study
  Country: US (occurrence: US)
  Receive Date: 20140114
  Receipt Date: 20140114
  Transmission Date: 20141002
  Serious: Yes (Death, Hospitalization)
  Sender: FDA-Public Use
  Company Number: US-ACTELION-A-US2013-92899

PATIENT
  Age: 75 Year
  Sex: Female

DRUGS (17)
  1. TRACLEER [Suspect]
     Indication: PULMONARY ARTERIAL HYPERTENSION
     Dosage: 125 MG BID
     Route: 048
     Dates: end: 20140101
  2. TRACLEER [Suspect]
     Dosage: 62.5 MG BID
     Route: 048
     Dates: start: 20131102
  3. OXYGEN [Concomitant]
  4. LASIX [Concomitant]
     Dosage: 40 MG, UNK
     Route: 048
  5. ASPIRIN [Concomitant]
     Dosage: 81 MG, UNK
  6. CALCIUM CARBONATE [Concomitant]
     Dosage: TABS I QD
  7. VITAMIN D [Concomitant]
     Dosage: 2000 U BID
  8. DIGOXIN [Concomitant]
     Dosage: 125  MCG QOD
  9. DILTIAZEM [Concomitant]
     Dosage: 180 MG QD
  10. LEVOTHYROXINE SODIUM [Concomitant]
     Dosage: 50 MCG QD
  11. ATIVAN [Concomitant]
     Dosage: 0.5 MG QHS
  12. PRILOSEC [Concomitant]
     Dosage: 20 MG QD
  13. POTASSIUM CITRATE [Concomitant]
     Dosage: 10 MEQ TID
  14. SIMVASTATIN [Concomitant]
     Dosage: 10 MG QD
  15. IMODIUM [Concomitant]
     Dosage: 2 MG QD PRN
  16. MECLIZINE [Concomitant]
     Dosage: 25 MG PRN
  17. NITROGLYCERIN [Concomitant]
     Dosage: PRN FOR CHEST PAIN

REACTIONS (20)
  - Pulmonary hypertension [Fatal]
  - Disease complication [Fatal]
  - Chest discomfort [Unknown]
  - Right ventricular failure [Unknown]
  - Anaemia [Unknown]
  - Haemoglobin decreased [Unknown]
  - Haematocrit decreased [Unknown]
  - Liver function test abnormal [Unknown]
  - Aspartate aminotransferase increased [Unknown]
  - Alanine aminotransferase increased [Unknown]
  - Hyponatraemia [Unknown]
  - Hypokalaemia [Unknown]
  - Nausea [Unknown]
  - Diarrhoea [Unknown]
  - Weight increased [Unknown]
  - Muscular weakness [Unknown]
  - Dyspnoea exertional [Unknown]
  - Dizziness [Unknown]
  - Palpitations [Unknown]
  - Oedema peripheral [Unknown]
